FAERS Safety Report 6739042-X (Version None)
Quarter: 2010Q2

REPORT INFORMATION
  Report Type: 
  Country: None (occurrence: None)
  Receive Date: 20100524
  Receipt Date: 20100524
  Transmission Date: 20101027
  Serious: Yes (Life-Threatening, Hospitalization, Disabling, Other)
  Sender: FDA-Public Use
  Company Number: None

PATIENT
  Age: 38 Year
  Sex: Male
  Weight: 90.7194 kg

DRUGS (2)
  1. CLOZARIL [Suspect]
  2. LAMICTAL [Suspect]

REACTIONS (1)
  - WHITE BLOOD CELL COUNT DECREASED [None]
